FAERS Safety Report 16745838 (Version 1)
Quarter: 2019Q4

REPORT INFORMATION
  Report Type: Spontaneous
  Country: US (occurrence: US)
  Receive Date: 20190827
  Receipt Date: 20190827
  Transmission Date: 20200122
  Serious: Yes (Hospitalization)
  Sender: FDA-Public Use
  Company Number: None

PATIENT
  Age: 88 Year
  Sex: Male
  Weight: 57 kg

DRUGS (4)
  1. ELIQUIS [Suspect]
     Active Substance: APIXABAN
     Indication: THROMBOSIS PROPHYLAXIS
     Route: 048
     Dates: start: 20190703, end: 20190721
  2. VOLTARN PATCH [Concomitant]
  3. ASPIRIN. [Concomitant]
     Active Substance: ASPIRIN
  4. MOTRIN [Concomitant]
     Active Substance: IBUPROFEN

REACTIONS (4)
  - Haemoglobin decreased [None]
  - Transfusion [None]
  - Haematocrit decreased [None]
  - Post procedural complication [None]

NARRATIVE: CASE EVENT DATE: 20190705
